FAERS Safety Report 9156786 (Version 1)
Quarter: 2013Q1

REPORT INFORMATION
  Report Type: Spontaneous
  Country: US (occurrence: None)
  Receive Date: 20130308
  Receipt Date: 20130308
  Transmission Date: 20140127
  Serious: Yes (Other)
  Sender: FDA-Public Use
  Company Number: None

PATIENT
  Sex: Male

DRUGS (3)
  1. TASIGNA [Suspect]
     Dosage: TASIGNIA 150MG 2BID PO
     Route: 048
     Dates: start: 20111108, end: 201302
  2. TASIGNA [Suspect]
     Dosage: TASIGNIA 150MG 2BID PO
     Route: 048
     Dates: start: 20111108, end: 201302
  3. DETROL [Concomitant]

REACTIONS (1)
  - Cough [None]
